FAERS Safety Report 17129322 (Version 4)
Quarter: 2019Q4

REPORT INFORMATION
  Report Type: Spontaneous
  Country: TR (occurrence: TR)
  Receive Date: 20191209
  Receipt Date: 20191231
  Transmission Date: 20200122
  Serious: Yes (Death, Hospitalization, Other)
  Sender: FDA-Public Use
  Company Number: TR-PFIZER INC-2019527322

PATIENT
  Age: 57 Year
  Sex: Female

DRUGS (4)
  1. IDARUBICIN [Concomitant]
     Active Substance: IDARUBICIN
     Indication: PROPHYLAXIS
     Dosage: UNK
  2. BOSUTINIB [Suspect]
     Active Substance: BOSUTINIB
     Indication: CHRONIC MYELOID LEUKAEMIA
     Dosage: 500 MG, 1X/DAY (1X1 500 MG)
     Route: 048
     Dates: start: 20191031, end: 20191104
  3. TAZOCIN [Concomitant]
     Active Substance: PIPERACILLIN SODIUM\TAZOBACTAM SODIUM
     Indication: PYREXIA
     Dosage: UNK
  4. CYTARABINE. [Concomitant]
     Active Substance: CYTARABINE
     Indication: PROPHYLAXIS
     Dosage: UNK

REACTIONS (6)
  - Vasculitis [Recovering/Resolving]
  - Renal failure [Recovered/Resolved]
  - Bone marrow failure [Recovering/Resolving]
  - Pancytopenia [Not Recovered/Not Resolved]
  - Sepsis [Fatal]
  - Angiopathy [Recovering/Resolving]

NARRATIVE: CASE EVENT DATE: 2019
